FAERS Safety Report 17280052 (Version 2)
Quarter: 2020Q1

REPORT INFORMATION
  Report Type: Spontaneous
  Country: US (occurrence: US)
  Receive Date: 20200117
  Receipt Date: 20200128
  Transmission Date: 20200409
  Serious: No
  Sender: FDA-Public Use
  Company Number: US-CELGENEUS-USA-20200104529

PATIENT
  Age: 13 Year
  Sex: Male
  Weight: 62 kg

DRUGS (6)
  1. RIFAMPIN. [Concomitant]
     Active Substance: RIFAMPIN
     Indication: LEPROSY
     Dosage: 450 MILLIGRAM
     Route: 048
     Dates: start: 20181115
  2. THALOMID [Suspect]
     Active Substance: THALIDOMIDE
     Indication: TYPE 2 LEPRA REACTION
     Dosage: 100 MILLIGRAM
     Route: 048
     Dates: start: 20190620
  3. CLARITHROMYCIN. [Concomitant]
     Active Substance: CLARITHROMYCIN
     Indication: LEPROSY
     Dosage: 250 MILLIGRAM
     Route: 048
     Dates: start: 20181115
  4. THALOMID [Suspect]
     Active Substance: THALIDOMIDE
     Dosage: 50 MILLIGRAM
     Route: 048
     Dates: start: 201912
  5. THALOMID [Suspect]
     Active Substance: THALIDOMIDE
     Dosage: 100 MILLIGRAM
     Route: 048
     Dates: start: 202001
  6. DAPSONE. [Concomitant]
     Active Substance: DAPSONE
     Indication: LEPROSY
     Dosage: 50 MILLIGRAM
     Route: 048
     Dates: start: 20181115

REACTIONS (1)
  - Type 2 lepra reaction [Recovering/Resolving]

NARRATIVE: CASE EVENT DATE: 20191217
